FAERS Safety Report 9422470 (Version 1)
Quarter: 2013Q3

REPORT INFORMATION
  Report Type: Other
  Country: GB (occurrence: GB)
  Receive Date: 20130726
  Receipt Date: 20130726
  Transmission Date: 20140515
  Serious: Yes (Hospitalization, Other)
  Sender: FDA-Public Use
  Company Number: GB-TARO PHARMACEUTICALS U.S.A., INC-2013SUN01072

PATIENT
  Age: 76 Year
  Sex: Female

DRUGS (8)
  1. WARFARIN [Suspect]
     Indication: PRODUCT USED FOR UNKNOWN INDICATION
     Route: 065
  2. KEPPRA [Interacting]
     Indication: CONVULSION
     Dosage: 750 MG, BID
     Route: 048
     Dates: start: 20130531, end: 20130612
  3. ATORVASTATIN [Concomitant]
  4. BISOPROLOL [Concomitant]
  5. DIGOXIN [Concomitant]
  6. METFORMIN [Concomitant]
  7. OMEPRAZOLE [Concomitant]
  8. PARACETAMOL [Concomitant]

REACTIONS (4)
  - Drug interaction [Unknown]
  - Liver function test abnormal [Not Recovered/Not Resolved]
  - Hepatic function abnormal [Not Recovered/Not Resolved]
  - International normalised ratio abnormal [Unknown]
